FAERS Safety Report 10891724 (Version 6)
Quarter: 2015Q2

REPORT INFORMATION
  Report Type: Spontaneous
  Country: US (occurrence: US)
  Receive Date: 20150306
  Receipt Date: 20150611
  Transmission Date: 20150821
  Serious: Yes (Hospitalization, Disabling, Other)
  Sender: FDA-Public Use
  Company Number: US-009507513-1106USA03552

PATIENT
  Sex: Female
  Weight: 65.76 kg

DRUGS (4)
  1. ALENDRONATE SODIUM. [Suspect]
     Active Substance: ALENDRONATE SODIUM
     Indication: BONE DENSITY DECREASED
     Dosage: 70 MG, QW
     Route: 048
     Dates: start: 20080221, end: 20100426
  2. FOSAMAX [Suspect]
     Active Substance: ALENDRONATE SODIUM
     Indication: OSTEOPOROSIS
     Dosage: 10 MG, UNK
     Route: 048
     Dates: start: 20000512, end: 20000607
  3. ALENDRONATE SODIUM. [Suspect]
     Active Substance: ALENDRONATE SODIUM
     Indication: OSTEOPOROSIS
  4. FOSAMAX [Suspect]
     Active Substance: ALENDRONATE SODIUM
     Indication: BONE DENSITY DECREASED
     Dosage: 70 MG, QW
     Route: 048
     Dates: start: 2000, end: 2008

REACTIONS (34)
  - Bone disorder [Not Recovered/Not Resolved]
  - Basal cell carcinoma [Unknown]
  - Hypothyroidism [Unknown]
  - Granuloma [Unknown]
  - Osteoarthritis [Unknown]
  - Wrist fracture [Unknown]
  - Bunion operation [Unknown]
  - Rhinitis allergic [Unknown]
  - Rotator cuff syndrome [Unknown]
  - Seborrhoeic keratosis [Unknown]
  - Inguinal hernia [Unknown]
  - Femur fracture [Recovered/Resolved]
  - Sleep apnoea syndrome [Unknown]
  - Fall [Unknown]
  - Oedema peripheral [Unknown]
  - Gastrooesophageal reflux disease [Unknown]
  - Fall [Recovered/Resolved]
  - Uterine disorder [Unknown]
  - Tibia fracture [Recovering/Resolving]
  - Tendon disorder [Unknown]
  - Chronic actinic dermatitis [Unknown]
  - Body height decreased [Unknown]
  - Glaucoma [Unknown]
  - Fall [Recovered/Resolved]
  - Femur fracture [Recovered/Resolved]
  - Joint injury [Unknown]
  - Sinus disorder [Unknown]
  - Iron deficiency anaemia [Unknown]
  - Rotator cuff syndrome [Unknown]
  - Rotator cuff syndrome [Unknown]
  - Morton^s neuralgia [Unknown]
  - Meningitis viral [Unknown]
  - Weight increased [Unknown]
  - Pain in extremity [Unknown]

NARRATIVE: CASE EVENT DATE: 200012
